FAERS Safety Report 8871915 (Version 2)
Quarter: 2013Q2

REPORT INFORMATION
  Report Type: Report from Study
  Country: JP (occurrence: JP)
  Receive Date: 20121029
  Receipt Date: 20130610
  Transmission Date: 20140414
  Serious: Yes (Death, Hospitalization, Other)
  Sender: FDA-Public Use
  Company Number: JP-SHIRE-ALL1-2012-05190

PATIENT
  Age: 87 Year
  Sex: Male

DRUGS (9)
  1. 405 (LANTHANUM CARBONATE) [Suspect]
     Indication: HYPERPHOSPHATAEMIA
     Dosage: 750 MG, 1X/DAY:QD
     Route: 048
     Dates: start: 20090427, end: 20120322
  2. CALTAN [Concomitant]
     Indication: HYPERPHOSPHATAEMIA
     Dosage: 1.5 G, UNKNOWN
     Route: 048
     Dates: start: 20090427, end: 20100620
  3. CALTAN [Concomitant]
     Dosage: 0.5 G, UNKNOWN
     Route: 048
     Dates: start: 20100621
  4. ALFAROL [Concomitant]
     Indication: SECONDARY HYPERTHYROIDISM
     Dosage: 0.25 ?G, UNKNOWN
     Route: 048
     Dates: start: 20090427, end: 20111212
  5. ALFAROL [Concomitant]
     Dosage: 0.5 ?G, UNKNOWN
     Route: 048
     Dates: start: 20111213, end: 20120322
  6. MUCODYNE [Concomitant]
     Indication: PRODUCT USED FOR UNKNOWN INDICATION
     Dosage: 750 MG, UNKNOWN
     Route: 048
  7. PREDONINE                          /00016201/ [Concomitant]
     Indication: PRODUCT USED FOR UNKNOWN INDICATION
     Dosage: 5 MG, UNKNOWN
     Route: 048
  8. GASTER D [Concomitant]
     Indication: PRODUCT USED FOR UNKNOWN INDICATION
     Dosage: 10 MG, UNKNOWN
     Route: 048
  9. EPOGIN [Concomitant]
     Indication: PRODUCT USED FOR UNKNOWN INDICATION
     Dosage: 750 IU, UNKNOWN
     Route: 041

REACTIONS (5)
  - Shock [Fatal]
  - Mesenteric artery thrombosis [Fatal]
  - Sepsis [Unknown]
  - Nausea [Unknown]
  - Vomiting [Unknown]
